FAERS Safety Report 4906032-9 (Version None)
Quarter: 2006Q1

REPORT INFORMATION
  Report Type: 
  Country: None (occurrence: None)
  Receive Date: 20060209
  Receipt Date: 20051216
  Transmission Date: 20060701
  Serious: Yes (Other)
  Sender: FDA-Public Use
  Company Number: US-RB-2486-2005

PATIENT
  Sex: Female
  Weight: 99.88 kg

DRUGS (3)
  1. SUBOXONE [Suspect]
     Route: 060
     Dates: start: 20051207, end: 20051207
  2. SUBOXONE [Suspect]
     Route: 060
     Dates: start: 20051208
  3. MEDICINALPRODUCT NOT SPECIFIED BY SENDER [Concomitant]
     Dosage: PATIENT REPORTS HAD BEEN TAKING PRIOR TO SUBOXONE STOPPED AND RESTARTED ON 16-DEC-2005
     Dates: start: 20051216

REACTIONS (1)
  - CHEST PAIN [None]
